FAERS Safety Report 6900756-X (Version None)
Quarter: 2010Q3

REPORT INFORMATION
  Report Type: 
  Country: None (occurrence: None)
  Receive Date: 20100803
  Receipt Date: 20100723
  Transmission Date: 20110219
  Serious: Yes (Other)
  Sender: FDA-Public Use
  Company Number: US-RB-008144-10

PATIENT
  Age: 44 Year
  Sex: Female

DRUGS (1)
  1. SUBOXONE [Suspect]
     Indication: PRODUCT USED FOR UNKNOWN INDICATION
     Dosage: DOSING DETAILS UNKNOWN
     Route: 065

REACTIONS (9)
  - ANGER [None]
  - DEPRESSION [None]
  - DRUG DEPENDENCE [None]
  - GENERALISED OEDEMA [None]
  - JOINT SWELLING [None]
  - MEMORY IMPAIRMENT [None]
  - PANIC ATTACK [None]
  - SOMNOLENCE [None]
  - SUICIDAL IDEATION [None]
